FAERS Safety Report 25209048 (Version 1)
Quarter: 2025Q2

REPORT INFORMATION
  Report Type: Spontaneous
  Country: US (occurrence: US)
  Receive Date: 20250417
  Receipt Date: 20250417
  Transmission Date: 20250716
  Serious: No
  Sender: BRISTOL MYERS SQUIBB
  Company Number: US-BRISTOL-MYERS SQUIBB COMPANY-2025-055972

PATIENT
  Age: 70 Year
  Sex: Female

DRUGS (1)
  1. POMALYST [Suspect]
     Active Substance: POMALIDOMIDE
     Indication: Thyroiditis
     Dosage: FREQUENCY: 21 DAYS
     Route: 048

REACTIONS (5)
  - Back pain [Unknown]
  - Fatigue [Unknown]
  - Treatment noncompliance [Unknown]
  - Somnolence [Unknown]
  - Off label use [Unknown]
